FAERS Safety Report 10081514 (Version 2)
Quarter: 2014Q2

REPORT INFORMATION
  Report Type: Spontaneous
  Country: US (occurrence: US)
  Receive Date: 20140416
  Receipt Date: 20140520
  Transmission Date: 20141212
  Serious: Yes (Death)
  Sender: FDA-Public Use
  Company Number: US-CELGENEUS-163-22393-14042558

PATIENT
  Age: 39 Year
  Sex: Male

DRUGS (20)
  1. ISTODAX [Suspect]
     Indication: NON-HODGKIN^S LYMPHOMA
     Route: 065
     Dates: start: 20140128
  2. ISTODAX [Suspect]
     Indication: HODGKIN^S DISEASE
     Route: 065
     Dates: start: 20140211
  3. ISTODAX [Suspect]
     Route: 065
     Dates: start: 20140226
  4. ACYCLOVIR [Concomitant]
     Indication: PRODUCT USED FOR UNKNOWN INDICATION
     Dosage: 1600 MILLIGRAM
     Route: 048
  5. BACTRIM DS [Concomitant]
     Indication: PRODUCT USED FOR UNKNOWN INDICATION
     Route: 048
  6. LEVAQUIN [Concomitant]
     Indication: PRODUCT USED FOR UNKNOWN INDICATION
     Dosage: 750 MILLIGRAM
     Route: 048
  7. OXYCONTIN [Concomitant]
     Indication: PRODUCT USED FOR UNKNOWN INDICATION
     Dosage: 80 MILLIGRAM
     Route: 048
  8. COLACE [Concomitant]
     Indication: PRODUCT USED FOR UNKNOWN INDICATION
     Dosage: 400 MILLIGRAM
     Route: 065
  9. SENOKOT [Concomitant]
     Indication: PRODUCT USED FOR UNKNOWN INDICATION
     Dosage: 2 TABLET
     Route: 048
  10. FOLIC ACID [Concomitant]
     Indication: PRODUCT USED FOR UNKNOWN INDICATION
     Dosage: 1 MILLIGRAM
     Route: 065
  11. POTASSIUM CHLORIDE [Concomitant]
     Indication: PRODUCT USED FOR UNKNOWN INDICATION
     Dosage: 20 MILLIEQUIVALENTS
     Route: 048
  12. MULTIVITAMINS [Concomitant]
     Indication: PRODUCT USED FOR UNKNOWN INDICATION
     Route: 048
  13. VITAMIN D [Concomitant]
     Indication: PRODUCT USED FOR UNKNOWN INDICATION
     Dosage: 2000 UNITS
     Route: 048
  14. MIRALAX [Concomitant]
     Indication: CONSTIPATION
     Dosage: 1 CAPFUL
     Route: 065
  15. ALBUTEROL [Concomitant]
     Indication: DYSPNOEA
     Dosage: 1 - 2 PUFFS
     Route: 065
  16. COMPAZINE [Concomitant]
     Indication: NAUSEA
     Dosage: 5 - 10MG
     Route: 065
  17. ZOFRAN [Concomitant]
     Indication: NAUSEA
     Dosage: 24 MILLIGRAM
     Route: 065
  18. ATIVAN [Concomitant]
     Indication: NAUSEA
     Dosage: 0.5 - 2 MG
     Route: 065
  19. OXYCODONE [Concomitant]
     Indication: PAIN
     Dosage: 5 - 10MG
     Route: 065
  20. LANOLIN [Concomitant]
     Indication: NAUSEA
     Route: 065

REACTIONS (2)
  - Hodgkin^s disease [Fatal]
  - Non-Hodgkin^s lymphoma [Fatal]
